FAERS Safety Report 25712318 (Version 1)
Quarter: 2025Q3

REPORT INFORMATION
  Report Type: Spontaneous
  Country: US (occurrence: US)
  Receive Date: 20250821
  Receipt Date: 20250821
  Transmission Date: 20251021
  Serious: No
  Sender: REGENERON
  Company Number: US-REGENERON PHARMACEUTICALS, INC.-2025-114906

PATIENT
  Sex: Female

DRUGS (2)
  1. PRALUENT [Suspect]
     Active Substance: ALIROCUMAB
     Indication: Blood cholesterol increased
     Dosage: 75 MG, Q2W (EVERY OTHER WEEK) (STRENGTH: 75 MG/ML)
     Route: 058
  2. POTASSIUM [Concomitant]
     Active Substance: POTASSIUM
     Indication: Product used for unknown indication

REACTIONS (1)
  - Product preparation error [Unknown]
